FAERS Safety Report 6361104-X (Version None)
Quarter: 2009Q3

REPORT INFORMATION
  Report Type: 
  Country: None (occurrence: None)
  Receive Date: 20090918
  Receipt Date: 20090909
  Transmission Date: 20100115
  Serious: Yes (Hospitalization)
  Sender: FDA-Public Use
  Company Number: US-AVENTIS-200918076US

PATIENT
  Sex: Male

DRUGS (3)
  1. LANTUS [Suspect]
     Route: 058
     Dates: start: 20070101, end: 20090909
  2. ABILIFY [Concomitant]
     Indication: DEPRESSION
     Dosage: DOSE: UNK
  3. ABILIFY [Concomitant]
     Indication: ANXIETY
     Dosage: DOSE: UNK

REACTIONS (3)
  - BLOOD GLUCOSE INCREASED [None]
  - FUNGAL INFECTION [None]
  - HAEMORRHAGE [None]
